FAERS Safety Report 15643670 (Version 1)
Quarter: 2018Q4

REPORT INFORMATION
  Report Type: Report from Study
  Country: US (occurrence: US)
  Receive Date: 20181121
  Receipt Date: 20181121
  Transmission Date: 20190205
  Serious: No
  Sender: FDA-Public Use
  Company Number: US-ALEXION PHARMACEUTICALS INC.-A201815305

PATIENT
  Sex: Female

DRUGS (1)
  1. SOLIRIS [Suspect]
     Active Substance: ECULIZUMAB
     Indication: PRODUCT USED FOR UNKNOWN INDICATION
     Route: 065

REACTIONS (8)
  - Neutrophil count decreased [Unknown]
  - Neutrophil percentage decreased [Unknown]
  - Blood cholesterol increased [Unknown]
  - White blood cell count decreased [Unknown]
  - Non-high-density lipoprotein cholesterol increased [Unknown]
  - Immature granulocyte count increased [Unknown]
  - Reticulocyte percentage increased [Unknown]
  - Lymphocyte percentage increased [Unknown]

NARRATIVE: CASE EVENT DATE: 20180206
